FAERS Safety Report 24731490 (Version 2)
Quarter: 2024Q4

REPORT INFORMATION
  Report Type: Spontaneous
  Country: CN (occurrence: CN)
  Receive Date: 20241213
  Receipt Date: 20241217
  Transmission Date: 20250114
  Serious: Yes (Other)
  Sender: MERCK
  Company Number: CN-009507513-2412CHN003110

PATIENT
  Age: 86 Year
  Sex: Male

DRUGS (1)
  1. CILASTATIN SODIUM\IMIPENEM [Suspect]
     Active Substance: CILASTATIN SODIUM\IMIPENEM
     Indication: Pneumonia
     Dosage: 1 G,TID
     Route: 041
     Dates: start: 20241110, end: 20241115

REACTIONS (2)
  - Hepatic function abnormal [Recovered/Resolved]
  - Suspected drug-induced liver injury [Recovered/Resolved]

NARRATIVE: CASE EVENT DATE: 20241115
